FAERS Safety Report 16415323 (Version 1)
Quarter: 2019Q2

REPORT INFORMATION
  Report Type: Spontaneous
  Country: ES (occurrence: ES)
  Receive Date: 20190611
  Receipt Date: 20190611
  Transmission Date: 20190711
  Serious: Yes (Hospitalization)
  Sender: FDA-Public Use
  Company Number: ES-BAYER-2019-109564

PATIENT
  Age: 59 Year
  Sex: Male

DRUGS (2)
  1. DEXKETOPROFENO [DEXKETOPROFEN] [Suspect]
     Active Substance: DEXKETOPROFEN
     Indication: BACK PAIN
     Dosage: 25 MG, BID
     Route: 048
     Dates: start: 20190429, end: 20190505
  2. ALEVE [Suspect]
     Active Substance: NAPROXEN SODIUM
     Indication: BACK PAIN
     Dosage: 550 MG, BID
     Route: 048
     Dates: start: 20161010, end: 20190429

REACTIONS (3)
  - Vomiting [Not Recovered/Not Resolved]
  - Acute kidney injury [Not Recovered/Not Resolved]
  - Diarrhoea [Not Recovered/Not Resolved]

NARRATIVE: CASE EVENT DATE: 20190507
